FAERS Safety Report 14279192 (Version 1)
Quarter: 2017Q4

REPORT INFORMATION
  Report Type: Spontaneous
  Country: TN (occurrence: TN)
  Receive Date: 20171212
  Receipt Date: 20171212
  Transmission Date: 20180321
  Serious: Yes (Hospitalization)
  Sender: FDA-Public Use
  Company Number: TN-SAOL THERAPEUTICS-2017SAO03441

PATIENT

DRUGS (1)
  1. BACLOFEN. [Suspect]
     Active Substance: BACLOFEN
     Route: 048

REACTIONS (3)
  - Delirium [Recovering/Resolving]
  - Overdose [Recovering/Resolving]
  - Poisoning deliberate [Recovering/Resolving]
